FAERS Safety Report 16511458 (Version 3)
Quarter: 2019Q3

REPORT INFORMATION
  Report Type: Report from Study
  Country: US (occurrence: US)
  Receive Date: 20190702
  Receipt Date: 20190904
  Transmission Date: 20191004
  Serious: Yes (Other)
  Sender: FDA-Public Use
  Company Number: US-BIOGEN-2019BI00756471

PATIENT
  Age: 45 Year
  Sex: Female

DRUGS (2)
  1. TYSABRI [Suspect]
     Active Substance: NATALIZUMAB
     Route: 065
     Dates: end: 201906
  2. TYSABRI [Suspect]
     Active Substance: NATALIZUMAB
     Indication: MULTIPLE SCLEROSIS
     Route: 065
     Dates: start: 20180215, end: 20190114

REACTIONS (12)
  - Blood pressure decreased [Recovered/Resolved]
  - Facial paralysis [Unknown]
  - Migraine without aura [Unknown]
  - Syncope [Unknown]
  - Dyskinesia [Unknown]
  - Bronchitis [Recovered/Resolved]
  - Respiratory tract infection [Unknown]
  - Multiple sclerosis [Unknown]
  - Hypertension [Not Recovered/Not Resolved]
  - Gait inability [Unknown]
  - Cerebral cyst [Unknown]
  - Dystonia [Unknown]

NARRATIVE: CASE EVENT DATE: 201810
